FAERS Safety Report 6575881-6 (Version None)
Quarter: 2010Q1

REPORT INFORMATION
  Report Type: 
  Country: None (occurrence: None)
  Receive Date: 20100209
  Receipt Date: 20100202
  Transmission Date: 20100710
  Serious: Yes (Other)
  Sender: FDA-Public Use
  Company Number: US-PFIZER INC-2010015802

PATIENT
  Age: 66 Year
  Sex: Male

DRUGS (1)
  1. CHANTIX [Suspect]

REACTIONS (4)
  - AGGRESSION [None]
  - COLON OPERATION [None]
  - MOOD SWINGS [None]
  - WEIGHT DECREASED [None]
